FAERS Safety Report 7210989-3 (Version None)
Quarter: 2011Q1

REPORT INFORMATION
  Report Type: 
  Country: None (occurrence: None)
  Receive Date: 20110105
  Receipt Date: 20101227
  Transmission Date: 20110831
  Serious: Yes (Hospitalization)
  Sender: FDA-Public Use
  Company Number: B0683235A

PATIENT
  Sex: Female

DRUGS (7)
  1. GASTER D [Concomitant]
     Indication: GASTRIC DISORDER
     Dosage: 40MG PER DAY
     Route: 048
     Dates: start: 20101030
  2. GABAPENTIN [Concomitant]
     Indication: EPILEPSY
     Dosage: 400MG PER DAY
     Route: 048
  3. NEORAL [Concomitant]
     Indication: SYSTEMIC LUPUS ERYTHEMATOSUS
     Dosage: 25MG PER DAY
     Route: 065
     Dates: end: 20101030
  4. LAMICTAL [Suspect]
     Indication: EPILEPSY
     Dosage: 50MG PER DAY
     Route: 048
     Dates: start: 20100928, end: 20101030
  5. DEPAKENE [Suspect]
     Indication: EPILEPSY
     Route: 048
     Dates: end: 20101030
  6. BENET [Concomitant]
     Dosage: 2.5MG PER DAY
     Route: 048
     Dates: start: 20101012, end: 20101030
  7. PREDNISOLONE [Concomitant]
     Indication: SYSTEMIC LUPUS ERYTHEMATOSUS
     Dosage: 7.5MG PER DAY
     Route: 065
     Dates: end: 20101030

REACTIONS (17)
  - ALANINE AMINOTRANSFERASE INCREASED [None]
  - GENERALISED ERYTHEMA [None]
  - BLOOD CREATININE INCREASED [None]
  - ASPARTATE AMINOTRANSFERASE INCREASED [None]
  - C-REACTIVE PROTEIN INCREASED [None]
  - BLOOD UREA INCREASED [None]
  - WHITE BLOOD CELL COUNT DECREASED [None]
  - BLISTER [None]
  - PYREXIA [None]
  - SKIN EROSION [None]
  - APHTHOUS STOMATITIS [None]
  - HYPOPHAGIA [None]
  - PERIORBITAL OEDEMA [None]
  - STEVENS-JOHNSON SYNDROME [None]
  - ERYTHEMA MULTIFORME [None]
  - STOMATITIS [None]
  - OCULAR HYPERAEMIA [None]
